FAERS Safety Report 22057894 (Version 6)
Quarter: 2023Q2

REPORT INFORMATION
  Report Type: Other
  Country: PT (occurrence: PT)
  Receive Date: 20230303
  Receipt Date: 20230519
  Transmission Date: 20230722
  Serious: Yes (Other)
  Sender: FDA-Public Use
  Company Number: PT-AUROBINDO-AUR-APL-2023-008230

PATIENT
  Age: 31 Year
  Sex: Female

DRUGS (17)
  1. MYCOPHENOLATE MOFETIL [Suspect]
     Active Substance: MYCOPHENOLATE MOFETIL
     Indication: IgA nephropathy
     Route: 065
  2. DAPAGLIFLOZIN [Suspect]
     Active Substance: DAPAGLIFLOZIN
     Indication: IgA nephropathy
     Route: 065
  3. RAMIPRIL [Suspect]
     Active Substance: RAMIPRIL
     Indication: Proteinuria
     Route: 065
  4. RAMIPRIL [Suspect]
     Active Substance: RAMIPRIL
     Indication: IgA nephropathy
     Route: 065
  5. RAMIPRIL [Suspect]
     Active Substance: RAMIPRIL
     Indication: Hypertension
  6. RAMIPRIL [Suspect]
     Active Substance: RAMIPRIL
     Indication: Hypertension
  7. RAMIPRIL [Suspect]
     Active Substance: RAMIPRIL
     Indication: Hypercholesterolaemia
  8. LOSARTAN [Suspect]
     Active Substance: LOSARTAN
     Indication: Proteinuria
     Dosage: 200 MILLIGRAM, ONCE A DAY
     Route: 065
  9. LOSARTAN [Suspect]
     Active Substance: LOSARTAN
     Dosage: 150 MILLIGRAM, ONCE A DAY
     Route: 065
  10. LOSARTAN [Suspect]
     Active Substance: LOSARTAN
     Dosage: 150 MILLIGRAM, ONCE A DAY
     Route: 065
  11. LOSARTAN [Suspect]
     Active Substance: LOSARTAN
     Dosage: 200 MILLIGRAM, ONCE A DAY
     Route: 065
  12. SPIRONOLACTONE [Suspect]
     Active Substance: SPIRONOLACTONE
     Indication: Proteinuria
     Dosage: 12.5 MILLIGRAM, ONCE A DAY
     Route: 065
  13. PREDNISOLONE [Concomitant]
     Active Substance: PREDNISOLONE
     Indication: Immunosuppressant drug therapy
     Route: 065
  14. LOSARTAN [Concomitant]
     Active Substance: LOSARTAN
     Indication: Proteinuria
     Dosage: 200 MG, QD
  15. LOSARTAN [Concomitant]
     Active Substance: LOSARTAN
     Dosage: 150 MG, QD
  16. ATORVASTATIN CALCIUM [Concomitant]
     Active Substance: ATORVASTATIN CALCIUM
     Indication: Hypercholesterolaemia
     Route: 065
  17. SPIRONOLACTONE [Concomitant]
     Active Substance: SPIRONOLACTONE
     Indication: Proteinuria
     Dosage: 12.5 MG, QD

REACTIONS (7)
  - Cough [Unknown]
  - Therapy partial responder [Unknown]
  - Respiratory tract infection [Unknown]
  - Off label use [Unknown]
  - Drug intolerance [Unknown]
  - Blood pressure abnormal [Unknown]
  - Proteinuria [Unknown]
